FAERS Safety Report 14029774 (Version 1)
Quarter: 2017Q4

REPORT INFORMATION
  Report Type: Spontaneous
  Country: US (occurrence: US)
  Receive Date: 20171002
  Receipt Date: 20171002
  Transmission Date: 20180321
  Serious: Yes (Other)
  Sender: FDA-Public Use
  Company Number: US-009507513-1709USA014941

PATIENT
  Age: 57 Year
  Sex: Male

DRUGS (1)
  1. BELSOMRA [Suspect]
     Active Substance: SUVOREXANT
     Indication: INSOMNIA
     Dosage: 1 DF, HS
     Route: 048
     Dates: start: 201707

REACTIONS (7)
  - Drug ineffective [Unknown]
  - Dizziness [Unknown]
  - Sleep disorder [Unknown]
  - Anxiety [Unknown]
  - Suicidal ideation [Unknown]
  - Nausea [Unknown]
  - Somnolence [Unknown]

NARRATIVE: CASE EVENT DATE: 2017
